FAERS Safety Report 24688708 (Version 1)
Quarter: 2024Q4

REPORT INFORMATION
  Report Type: Spontaneous
  Country: AT (occurrence: AT)
  Receive Date: 20241203
  Receipt Date: 20241203
  Transmission Date: 20250114
  Serious: Yes (Hospitalization)
  Sender: NOVO NORDISK
  Company Number: AT-NOVOPROD-1323513

PATIENT
  Age: 46 Year
  Sex: Female
  Weight: 145 kg

DRUGS (1)
  1. SAXENDA [Suspect]
     Active Substance: LIRAGLUTIDE
     Indication: Obesity
     Dosage: UNK (NOT THE HIGHEST DOSAGE)
     Dates: start: 202404

REACTIONS (2)
  - Inflammation [Unknown]
  - Cholelithiasis [Unknown]
